FAERS Safety Report 4777925-0 (Version None)
Quarter: 2005Q3

REPORT INFORMATION
  Report Type: 
  Country: None (occurrence: None)
  Receive Date: 20050923
  Receipt Date: 20050913
  Transmission Date: 20060218
  Serious: Yes (Other)
  Sender: FDA-Public Use
  Company Number: GXKR2005DK01573

PATIENT
  Age: 62 Year
  Sex: Male

DRUGS (5)
  1. ASPIRIN [Suspect]
     Dosage: 150 MG, QD
  2. CLARITHROMYCIN [Suspect]
     Indication: BACTERIAL INFECTION
     Dosage: 500  MG, BID
  3. CIPROFLOXACIN [Suspect]
     Dosage: 200 MG, BID
  4. WARFARIN(WARFARIN) [Suspect]
  5. PIPERACILLIN [Suspect]
     Dosage: 4000 MG, BID

REACTIONS (7)
  - ACTIVATED PARTIAL THROMBOPLASTIN TIME PROLONGED [None]
  - BLEEDING TIME PROLONGED [None]
  - BLOOD CREATININE INCREASED [None]
  - BLOOD UREA INCREASED [None]
  - HAEMORRHAGIC DIATHESIS [None]
  - PLATELET COUNT DECREASED [None]
  - SEPTIC SHOCK [None]
